FAERS Safety Report 15491178 (Version 1)
Quarter: 2018Q4

REPORT INFORMATION
  Report Type: Spontaneous
  Country: GB (occurrence: GB)
  Receive Date: 20181012
  Receipt Date: 20181012
  Transmission Date: 20190205
  Serious: Yes (Hospitalization)
  Sender: FDA-Public Use
  Company Number: GB-TEVA-2018-GB-963720

PATIENT
  Age: 94 Year
  Sex: Female

DRUGS (13)
  1. DOXYCYCLINE. [Concomitant]
     Active Substance: DOXYCYCLINE
     Dates: start: 20180905, end: 20180911
  2. BISOPROLOL [Concomitant]
     Active Substance: BISOPROLOL
  3. FERROUS SULFATE. [Concomitant]
     Active Substance: FERROUS SULFATE
     Dates: end: 20180908
  4. RAMIPRIL. [Suspect]
     Active Substance: RAMIPRIL
     Dosage: 1.25 MILLIGRAM DAILY;
     Route: 048
     Dates: end: 20180907
  5. GABAPENTIN. [Concomitant]
     Active Substance: GABAPENTIN
  6. ISOSORBIDE MONONITRATE. [Concomitant]
     Active Substance: ISOSORBIDE MONONITRATE
  7. WARFARIN [Concomitant]
     Active Substance: WARFARIN
  8. FUROSEMIDE. [Suspect]
     Active Substance: FUROSEMIDE
     Dosage: 20 MILLIGRAM DAILY; ON MORNING
     Route: 048
     Dates: end: 20180907
  9. IBUPROFEN. [Concomitant]
     Active Substance: IBUPROFEN
  10. ATORVASTATIN [Concomitant]
     Active Substance: ATORVASTATIN
  11. FOLIC ACID. [Concomitant]
     Active Substance: FOLIC ACID
     Dates: end: 20180908
  12. PARACETAMOL [Concomitant]
     Active Substance: ACETAMINOPHEN
  13. DIGOXIN. [Concomitant]
     Active Substance: DIGOXIN

REACTIONS (2)
  - Confusional state [Unknown]
  - Hyponatraemia [Recovering/Resolving]

NARRATIVE: CASE EVENT DATE: 20180906
